FAERS Safety Report 17213116 (Version 2)
Quarter: 2020Q1

REPORT INFORMATION
  Report Type: Spontaneous
  Country: GB (occurrence: GB)
  Receive Date: 20191230
  Receipt Date: 20200107
  Transmission Date: 20200409
  Serious: Yes (Other)
  Sender: FDA-Public Use
  Company Number: NVSC2019GB081354

PATIENT
  Age: 29 Year
  Sex: Male

DRUGS (2)
  1. MIRTAZAPINE. [Concomitant]
     Active Substance: MIRTAZAPINE
     Indication: PRODUCT USED FOR UNKNOWN INDICATION
     Dosage: 1 DF, QD
     Route: 065
     Dates: start: 20190307
  2. DICLOFENAC SODIUM. [Suspect]
     Active Substance: DICLOFENAC SODIUM
     Indication: PRODUCT USED FOR UNKNOWN INDICATION
     Dosage: 50 MG
     Route: 065
     Dates: start: 20191204

REACTIONS (3)
  - Joint swelling [Unknown]
  - Peripheral swelling [Unknown]
  - Rash macular [Recovered/Resolved]

NARRATIVE: CASE EVENT DATE: 201912
